FAERS Safety Report 9690944 (Version 1)
Quarter: 2013Q4

REPORT INFORMATION
  Report Type: Spontaneous
  Country: US (occurrence: None)
  Receive Date: 20131114
  Receipt Date: 20131114
  Transmission Date: 20140711
  Serious: Yes (Death)
  Sender: FDA-Public Use
  Company Number: None

PATIENT
  Age: 73 Year
  Sex: Female

DRUGS (12)
  1. RIVAROXABAN [Suspect]
     Indication: ATRIAL FIBRILLATION
  2. FUROSEMIDE (LASIX) [Concomitant]
  3. DIGOXIN (LANOXIN) [Concomitant]
  4. HYDROCHLOROTHIAZIDE (HYDRODIURIL) [Concomitant]
  5. HYDROCODONE-ACETAMINOPHEN (LORTAB) [Concomitant]
  6. LOSARTAN (COZAAR) [Concomitant]
  7. NEBIVOLOL (BYSTOLIC) [Concomitant]
  8. POTASSIUM CHLORIDE (K-DUR, KLOR-CON) [Concomitant]
  9. RANITIDINE (ZANTAC) [Concomitant]
  10. RANOLAZINE [Concomitant]
  11. RIVAROXABAN (XARELTO) [Concomitant]
  12. SIMVASTATIN (ZOCOR) [Concomitant]

REACTIONS (2)
  - Brain stem haemorrhage [None]
  - Intraventricular haemorrhage [None]
